FAERS Safety Report 12821002 (Version 1)
Quarter: 2016Q4

REPORT INFORMATION
  Report Type: Report from Study
  Country: IT (occurrence: IT)
  Receive Date: 20161006
  Receipt Date: 20161006
  Transmission Date: 20170207
  Serious: Yes (Hospitalization)
  Sender: FDA-Public Use
  Company Number: IT-BAXALTA-2016BLT007078

PATIENT
  Age: 53 Year
  Sex: Male

DRUGS (6)
  1. IDARUBICIN [Suspect]
     Active Substance: IDARUBICIN
     Indication: ACUTE LYMPHOCYTIC LEUKAEMIA
     Dosage: 21 MG
     Route: 042
     Dates: start: 20150907, end: 20150908
  2. ONCASPAR [Suspect]
     Active Substance: PEGASPARGASE
     Indication: ACUTE LYMPHOCYTIC LEUKAEMIA
     Dosage: 3600 U
     Route: 042
     Dates: start: 20150916, end: 20150916
  3. DEXAMETHASONE. [Suspect]
     Active Substance: DEXAMETHASONE
     Dosage: 16 MG
     Route: 042
     Dates: start: 20160914, end: 20160918
  4. VINCRISTINE [Suspect]
     Active Substance: VINCRISTINE
     Indication: ACUTE LYMPHOCYTIC LEUKAEMIA
     Dosage: 2 MG
     Route: 042
     Dates: start: 20150907, end: 20151001
  5. CYCLOPHOSPHAMIDE. [Suspect]
     Active Substance: CYCLOPHOSPHAMIDE
     Indication: ACUTE LYMPHOCYTIC LEUKAEMIA
     Dosage: 540 MG
     Route: 042
     Dates: start: 20150904, end: 20150906
  6. DEXAMETHASONE. [Suspect]
     Active Substance: DEXAMETHASONE
     Indication: ACUTE LYMPHOCYTIC LEUKAEMIA
     Dosage: 16 MG
     Route: 042
     Dates: start: 20150907, end: 20150911

REACTIONS (1)
  - Pneumonia fungal [Recovered/Resolved]

NARRATIVE: CASE EVENT DATE: 20150928
